FAERS Safety Report 9236087 (Version 1)
Quarter: 2013Q2

REPORT INFORMATION
  Report Type: Spontaneous
  Country: FR (occurrence: None)
  Receive Date: 20130405
  Receipt Date: 20130405
  Transmission Date: 20140414
  Serious: Yes (Other)
  Sender: FDA-Public Use
  Company Number: 2013034995

PATIENT
  Age: 35 Year
  Sex: Female

DRUGS (2)
  1. RHOPHYLAC [Suspect]
     Indication: ALLOIMMUNISATION
     Dosage: 1 SINGLE DOSE
     Route: 042
     Dates: start: 20130219, end: 20130219
  2. CYTOTEC [Suspect]
     Indication: ABORTION SPONTANEOUS
     Dosage: 800 MICROGRAM/DAY IN 4 DAYS
     Route: 048
     Dates: start: 20130219, end: 20130222

REACTIONS (6)
  - Metrorrhagia [None]
  - Pyrexia [None]
  - Dizziness [None]
  - Malaise [None]
  - Vomiting [None]
  - Headache [None]
